FAERS Safety Report 8293790-1 (Version None)
Quarter: 2012Q2

REPORT INFORMATION
  Report Type: 
  Country: None (occurrence: None)
  Receive Date: 20120413
  Receipt Date: 20120402
  Transmission Date: 20120825
  Serious: Yes (Hospitalization)
  Sender: FDA-Public Use
  Company Number: ALK_02418_2012

PATIENT
  Sex: Male
  Weight: 61.2356 kg

DRUGS (3)
  1. LISINOPRIL [Concomitant]
  2. VIVITROL [Suspect]
     Indication: DRUG DEPENDENCE
     Dosage: INTRAMUSCULAR
     Route: 030
     Dates: start: 20120329
  3. NEURONTIN [Concomitant]

REACTIONS (4)
  - MYALGIA [None]
  - AGGRESSION [None]
  - MUSCLE SPASMS [None]
  - DELIRIUM [None]
